FAERS Safety Report 16458505 (Version 1)
Quarter: 2019Q2

REPORT INFORMATION
  Report Type: Spontaneous
  Country: US (occurrence: US)
  Receive Date: 20190620
  Receipt Date: 20190620
  Transmission Date: 20190711
  Serious: No
  Sender: FDA-Public Use
  Company Number: US-THERAPEUTICSMD-2019TMD00385

PATIENT
  Age: 75 Year
  Sex: Female
  Weight: 63.49 kg

DRUGS (10)
  1. DIAZEPAM. [Concomitant]
     Active Substance: DIAZEPAM
     Dosage: 2.5 MG, 2X/DAY
  2. DULOXETINE. [Concomitant]
     Active Substance: DULOXETINE
     Dosage: 90 MG, 1X/DAY
  3. UNSPECIFIED VITAMIN FOR HER EYES [Concomitant]
  4. IMVEXXY [Suspect]
     Active Substance: ESTRADIOL
     Indication: PELVIC PAIN
     Dosage: 4 ?G, 1X/DAY AT AROUND NOON
     Route: 067
     Dates: start: 20190312
  5. TRAMADOL. [Concomitant]
     Active Substance: TRAMADOL
     Dosage: UNK, AS NEEDED
  6. IMVEXXY [Suspect]
     Active Substance: ESTRADIOL
     Dosage: 4 ?G, ONCE
     Route: 048
     Dates: start: 20190314, end: 20190314
  7. SYNTHROID [Concomitant]
     Active Substance: LEVOTHYROXINE SODIUM
     Dosage: 0.1 MG, 1X/DAY
  8. VITAMIN B COMPLEX [Concomitant]
     Active Substance: CYANOCOBALAMIN\DEXPANTHENOL\NIACINAMIDE\PYRIDOXINE HYDROCHLORIDE\RIBOFLAVIN 5^-PHOSPHATE SODIUM\THIAMINE HYDROCHLORIDE\VITAMIN B COMPLEX
  9. GABAPENTIN. [Concomitant]
     Active Substance: GABAPENTIN
     Dosage: 300 MG, 3X/DAY
  10. ACYCLOVIR. [Concomitant]
     Active Substance: ACYCLOVIR
     Route: 061

REACTIONS (3)
  - Pelvic pain [Not Recovered/Not Resolved]
  - Incorrect route of product administration [Recovered/Resolved]
  - Off label use [Not Recovered/Not Resolved]

NARRATIVE: CASE EVENT DATE: 20190312
